FAERS Safety Report 8209850-7 (Version None)
Quarter: 2012Q1

REPORT INFORMATION
  Report Type: 
  Country: None (occurrence: None)
  Receive Date: 20120314
  Receipt Date: 20120306
  Transmission Date: 20120608
  Serious: Yes (Other)
  Sender: FDA-Public Use
  Company Number: JP-FRI-1000029057

PATIENT
  Sex: Female

DRUGS (5)
  1. BENZODIAZEPINE ANXIOLYTICS [Suspect]
  2. ZOLPIDEM TARTRATE [Concomitant]
     Route: 048
  3. LEXAPRO [Suspect]
     Dosage: 20 MG
     Dates: start: 20110912, end: 20111104
  4. LEXAPRO [Suspect]
     Indication: DEPRESSION
     Dosage: 10 MG
     Route: 048
     Dates: start: 20110905, end: 20110911
  5. MEILAX(ETHYL LOFLAZEPATE), [Concomitant]
     Route: 048

REACTIONS (2)
  - IMPAIRED DRIVING ABILITY [None]
  - VISUAL ACUITY REDUCED [None]
